FAERS Safety Report 5405545-3 (Version None)
Quarter: 2007Q3

REPORT INFORMATION
  Report Type: 
  Country: None (occurrence: None)
  Receive Date: 20070803
  Receipt Date: 20070730
  Transmission Date: 20080115
  Serious: Yes (Other)
  Sender: FDA-Public Use
  Company Number: GR-PFIZER INC-2007062493

PATIENT
  Age: 61 Year
  Sex: Male

DRUGS (1)
  1. SUTENT [Suspect]
     Indication: RENAL CELL CARCINOMA STAGE UNSPECIFIED
     Route: 048
     Dates: start: 20061220, end: 20070112

REACTIONS (4)
  - CEREBRAL HAEMORRHAGE [None]
  - HEADACHE [None]
  - NUCHAL RIGIDITY [None]
  - VOMITING [None]
